FAERS Safety Report 6304821-X (Version None)
Quarter: 2009Q3

REPORT INFORMATION
  Report Type: 
  Country: None (occurrence: None)
  Receive Date: 20090806
  Receipt Date: 20090724
  Transmission Date: 20100115
  Serious: Yes (Hospitalization)
  Sender: FDA-Public Use
  Company Number: 2009AL004901

PATIENT
  Sex: Male

DRUGS (19)
  1. DIGOXIN [Suspect]
     Dosage: 0.25MG, PO
     Route: 048
  2. ALPHAGAN [Concomitant]
  3. GLYBURIDE [Concomitant]
  4. ACIPHEX [Concomitant]
  5. COREG [Concomitant]
  6. SIMVASATIN [Concomitant]
  7. METFORMIN HCL [Concomitant]
  8. XALATAN [Concomitant]
  9. SPIRONOLACTONE [Concomitant]
  10. LISINOPRIL [Concomitant]
  11. FUROSEMIDE [Concomitant]
  12. ACETAZOLAMIDE [Concomitant]
  13. COSOPT [Concomitant]
  14. LASIX [Concomitant]
  15. ZOCOR [Concomitant]
  16. ALDACTONE [Concomitant]
  17. DIAMOX [Concomitant]
  18. ASPIRIN [Concomitant]
  19. LANTUS [Concomitant]

REACTIONS (1)
  - HOSPITALISATION [None]
